FAERS Safety Report 12489138 (Version 3)
Quarter: 2016Q4

REPORT INFORMATION
  Report Type: Spontaneous
  Country: US (occurrence: US)
  Receive Date: 20160622
  Receipt Date: 20161202
  Transmission Date: 20170207
  Serious: Yes (Other)
  Sender: FDA-Public Use
  Company Number: US-BAYER-2016-115959

PATIENT
  Age: 45 Year
  Sex: Female
  Weight: 109.7 kg

DRUGS (15)
  1. TIZANIDINE. [Concomitant]
     Active Substance: TIZANIDINE
  2. CYCLOSPORINE. [Concomitant]
     Active Substance: CYCLOSPORINE
  3. DULOXETINE. [Concomitant]
     Active Substance: DULOXETINE
  4. METOCLOPRAMIDE. [Concomitant]
     Active Substance: METOCLOPRAMIDE
  5. GLIBENCLAMIDE [Concomitant]
     Active Substance: GLYBURIDE
  6. AVELOX [Suspect]
     Active Substance: MOXIFLOXACIN HYDROCHLORIDE
     Dosage: UNK
     Dates: start: 200607
  7. THEOPHYLLINE [Concomitant]
     Active Substance: THEOPHYLLINE ANHYDROUS
  8. CLOZAPINE. [Concomitant]
     Active Substance: CLOZAPINE
  9. VITAMIN B12 [Concomitant]
     Active Substance: CYANOCOBALAMIN
     Dosage: UNK
     Dates: start: 2015
  10. WARFARIN [Concomitant]
     Active Substance: WARFARIN
  11. OMEPRAZOLE. [Concomitant]
     Active Substance: OMEPRAZOLE
  12. METHOTREXATE. [Concomitant]
     Active Substance: METHOTREXATE
  13. ADVIL [Concomitant]
     Active Substance: IBUPROFEN
     Dosage: UNK
     Dates: start: 2016
  14. ROPINIROLE. [Concomitant]
     Active Substance: ROPINIROLE
  15. CORTICOSTEROIDS [Concomitant]
     Active Substance: CORTICOSTEROID NOS

REACTIONS (3)
  - Neuropathy peripheral [None]
  - Injury [None]
  - Anxiety [None]

NARRATIVE: CASE EVENT DATE: 200607
